FAERS Safety Report 21021684 (Version 1)
Quarter: 2022Q2

REPORT INFORMATION
  Report Type: Spontaneous
  Country: US (occurrence: None)
  Receive Date: 20220628
  Receipt Date: 20220628
  Transmission Date: 20220720
  Serious: No
  Sender: FDA-Public Use
  Company Number: None

PATIENT
  Sex: Male

DRUGS (1)
  1. KESIMPTA [Suspect]
     Active Substance: OFATUMUMAB
     Indication: Multiple sclerosis
     Dosage: FREQUENCY : MONTHLY;?
     Route: 058
     Dates: end: 20220628

REACTIONS (8)
  - Fall [None]
  - Gait disturbance [None]
  - Therapy interrupted [None]
  - Condition aggravated [None]
  - Seizure [None]
  - Memory impairment [None]
  - Hip fracture [None]
  - Fractured coccyx [None]
